FAERS Safety Report 9913502 (Version 4)
Quarter: 2014Q1

REPORT INFORMATION
  Report Type: Spontaneous
  Country: JP (occurrence: JP)
  Receive Date: 20140220
  Receipt Date: 20140313
  Transmission Date: 20141002
  Serious: Yes (Death, Hospitalization, Other)
  Sender: FDA-Public Use
  Company Number: JP-B.I. PHARMACEUTICALS,INC./RIDGEFIELD-2014-BI-07663NB

PATIENT
  Age: 96 Year
  Sex: Female
  Weight: 32 kg

DRUGS (13)
  1. TRAZENTA [Suspect]
     Indication: TYPE 2 DIABETES MELLITUS
     Dosage: 5 MG
     Route: 048
     Dates: start: 20130612, end: 20140214
  2. METHYCOBIDE [Concomitant]
     Dosage: 1500 MCG
     Route: 065
  3. MEVALOTIN [Concomitant]
     Dosage: 10 MG
     Route: 065
  4. GLUCOBAY OD [Concomitant]
     Dosage: 300 MG
     Route: 065
  5. MAGMITT [Concomitant]
     Dosage: 990 MG
     Route: 065
  6. KINEDAK [Concomitant]
     Dosage: 150 MG
     Route: 065
  7. GLUFAST [Concomitant]
     Dosage: 20 MG
     Route: 065
  8. TETUCUR S [Concomitant]
     Dosage: 200 MG
     Route: 065
  9. BENZALIN [Concomitant]
     Dosage: 5 MG
     Route: 065
  10. PERDIPINE [Concomitant]
     Dosage: 60 MG
     Route: 065
  11. SERMION [Concomitant]
     Dosage: 15 MG
     Route: 065
  12. CEROCRAL [Concomitant]
     Dosage: 30 MG
     Route: 065
  13. MARZULENE-S [Concomitant]
     Dosage: 1.5 G
     Route: 065

REACTIONS (4)
  - Pancreatitis acute [Fatal]
  - Altered state of consciousness [Unknown]
  - Bradycardia [Unknown]
  - Pneumonia [Unknown]
